FAERS Safety Report 4912346-9 (Version None)
Quarter: 2006Q1

REPORT INFORMATION
  Report Type: 
  Country: None (occurrence: None)
  Receive Date: 20060215
  Receipt Date: 20050110
  Transmission Date: 20060701
  Serious: No
  Sender: FDA-Public Use
  Company Number: US-GLAXOSMITHKLINE-A0540046A

PATIENT
  Age: 37 Year
  Sex: Female

DRUGS (2)
  1. VALTREX [Suspect]
     Dosage: 1TAB THREE TIMES PER DAY
     Route: 048
     Dates: start: 20050107, end: 20050107
  2. NO CONCURRENT MEDICATION [Concomitant]

REACTIONS (4)
  - MASTICATION DISORDER [None]
  - ORAL PAIN [None]
  - PRURITUS [None]
  - PRURITUS GENERALISED [None]
